FAERS Safety Report 6345696-2 (Version None)
Quarter: 2009Q3

REPORT INFORMATION
  Report Type: 
  Country: None (occurrence: None)
  Receive Date: 20090909
  Receipt Date: 20090831
  Transmission Date: 20100115
  Serious: No
  Sender: FDA-Public Use
  Company Number: US-B.I. PHARMACEUTICALS,INC./RIDGEFIELD-2009-BP-09524BP

PATIENT
  Age: 71 Year
  Sex: Male

DRUGS (5)
  1. FLOMAX [Suspect]
     Indication: BENIGN PROSTATIC HYPERPLASIA
     Dosage: 0.4 MG
     Route: 048
     Dates: start: 20090301
  2. SAW PALMETTO [Concomitant]
     Indication: BENIGN PROSTATIC HYPERPLASIA
  3. PROSTATE PLUS [Concomitant]
     Indication: BENIGN PROSTATIC HYPERPLASIA
  4. LIPITOR [Concomitant]
  5. VIAGRA [Concomitant]

REACTIONS (6)
  - ACNE [None]
  - HYPERAESTHESIA [None]
  - PRURITUS [None]
  - SKIN BURNING SENSATION [None]
  - SKIN TIGHTNESS [None]
  - URTICARIA [None]
